FAERS Safety Report 4398140-9 (Version None)
Quarter: 2004Q3

REPORT INFORMATION
  Report Type: 
  Country: None (occurrence: None)
  Receive Date: 20040713
  Receipt Date: 20040702
  Transmission Date: 20050211
  Serious: Yes (Death, Hospitalization)
  Sender: FDA-Public Use
  Company Number: 2004-02945

PATIENT
  Age: 6 Year
  Sex: Female

DRUGS (1)
  1. METHYLPREDNISOLONE ACETATE (METHYLPREDNISOLONE ACETATE) INJECTION, 20M [Suspect]
     Indication: ASTHMA
     Dosage: 24-96 MG, DAILY,

REACTIONS (1)
  - PNEUMONIA LEGIONELLA [None]
